FAERS Safety Report 7154162-6 (Version None)
Quarter: 2010Q4

REPORT INFORMATION
  Report Type: 
  Country: None (occurrence: None)
  Receive Date: 20101213
  Receipt Date: 20101207
  Transmission Date: 20110411
  Serious: Yes (Hospitalization, Congenital Anomaly, Other)
  Sender: FDA-Public Use
  Company Number: US-PFIZER INC-2010092586

PATIENT
  Sex: Female
  Weight: 2.8 kg

DRUGS (5)
  1. ZOLOFT [Suspect]
     Indication: ANXIETY
     Dosage: 50MG DAILY
     Route: 064
  2. ZOLOFT [Suspect]
     Dosage: 100MG DAILY
     Route: 064
  3. MONTELUKAST [Concomitant]
     Indication: ASTHMA
     Dosage: UNK
  4. CLARINEX [Concomitant]
     Indication: ASTHMA
     Dosage: UNK
  5. NASACORT [Concomitant]
     Indication: ASTHMA
     Dosage: UNK

REACTIONS (30)
  - ABDOMINAL PAIN UPPER [None]
  - AORTIC DISORDER [None]
  - BRONCHITIS [None]
  - BRONCHOSPASM [None]
  - CARDIOMEGALY [None]
  - CONSTIPATION [None]
  - DIARRHOEA [None]
  - DRUG EXPOSURE DURING PREGNANCY [None]
  - ECZEMA [None]
  - EYE ALLERGY [None]
  - FALL [None]
  - FALLOT'S TETRALOGY [None]
  - HYDRONEPHROSIS [None]
  - HYPOTONIA [None]
  - LOSS OF CONSCIOUSNESS [None]
  - LYMPHADENOPATHY [None]
  - MUSCLE STRAIN [None]
  - OTITIS MEDIA ACUTE [None]
  - PELVI-URETERIC OBSTRUCTION [None]
  - PNEUMONIA [None]
  - PULMONARY ARTERY STENOSIS [None]
  - PULMONARY HYPOPLASIA [None]
  - PULMONARY VASCULAR DISORDER [None]
  - PYREXIA [None]
  - RENAL APLASIA [None]
  - SPLENOMEGALY [None]
  - TRIGGER FINGER [None]
  - URINARY TRACT INFECTION [None]
  - VENTRICULAR SEPTAL DEFECT [None]
  - WEIGHT GAIN POOR [None]
